FAERS Safety Report 13547190 (Version 2)
Quarter: 2018Q3

REPORT INFORMATION
  Report Type: Spontaneous
  Country: IT (occurrence: IT)
  Receive Date: 20170515
  Receipt Date: 20180903
  Transmission Date: 20181010
  Serious: Yes (Other)
  Sender: FDA-Public Use
  Company Number: IT-TEVA-765917ACC

PATIENT
  Age: 57 Year
  Sex: Male

DRUGS (1)
  1. RISPERIDONE TEVA [Suspect]
     Active Substance: RISPERIDONE
     Indication: PSYCHOTIC DISORDER
     Dosage: 1 DOSAGE FORMS DAILY; 2?3 MG DAILY

REACTIONS (4)
  - Chronic hepatitis [Not Recovered/Not Resolved]
  - Drug abuse [Not Recovered/Not Resolved]
  - Liver disorder [Not Recovered/Not Resolved]
  - Alcohol abuse [Not Recovered/Not Resolved]
